FAERS Safety Report 5904761-1 (Version None)
Quarter: 2008Q3

REPORT INFORMATION
  Report Type: 
  Country: None (occurrence: None)
  Receive Date: 20080909
  Receipt Date: 20080317
  Transmission Date: 20090109
  Serious: Yes (Hospitalization)
  Sender: FDA-Public Use
  Company Number: 163-20785-08031095

PATIENT
  Age: 78 Year
  Sex: Male

DRUGS (5)
  1. THALIDOMIDE [Suspect]
     Indication: MULTIPLE MYELOMA
     Dosage: 100 MG, 1 IN 1 D, ORAL
     Route: 048
     Dates: start: 20070201, end: 20071201
  2. VELCADE [Concomitant]
  3. DIGOXIN [Concomitant]
  4. AMIODARONE HCL [Concomitant]
  5. COUMADIN [Concomitant]

REACTIONS (4)
  - BLOOD CREATININE INCREASED [None]
  - PYREXIA [None]
  - RENAL FAILURE [None]
  - SEPSIS [None]
